FAERS Safety Report 13570612 (Version 1)
Quarter: 2017Q2

REPORT INFORMATION
  Report Type: Spontaneous
  Country: TR (occurrence: TR)
  Receive Date: 20170523
  Receipt Date: 20170523
  Transmission Date: 20170830
  Serious: Yes (Other)
  Sender: FDA-Public Use
  Company Number: PHHY2017TR074936

PATIENT
  Age: 11 Year
  Sex: Male

DRUGS (1)
  1. OCTREOTIDE. [Suspect]
     Active Substance: OCTREOTIDE
     Indication: ECHINOCOCCIASIS
     Dosage: UNK
     Route: 065

REACTIONS (4)
  - Amylase increased [Unknown]
  - C-reactive protein increased [Unknown]
  - Product use in unapproved indication [Unknown]
  - Pyrexia [Unknown]
